FAERS Safety Report 14196240 (Version 1)
Quarter: 2017Q4

REPORT INFORMATION
  Report Type: Spontaneous
  Country: US (occurrence: None)
  Receive Date: 20171116
  Receipt Date: 20171116
  Transmission Date: 20180321
  Serious: Yes (Hospitalization, Disabling)
  Sender: FDA-Public Use
  Company Number: None

PATIENT
  Age: 78 Year
  Sex: Male
  Weight: 81.65 kg

DRUGS (12)
  1. VESICARE [Suspect]
     Active Substance: SOLIFENACIN SUCCINATE
     Indication: HYPERTONIC BLADDER
     Route: 048
     Dates: start: 20170615, end: 20170822
  2. TYLENOL [Concomitant]
     Active Substance: ACETAMINOPHEN
  3. VALSARTAN. [Concomitant]
     Active Substance: VALSARTAN
  4. QUINAPRIL. [Concomitant]
     Active Substance: QUINAPRIL
  5. AMLODIPINE [Concomitant]
     Active Substance: AMLODIPINE BESYLATE
  6. VITAMIN D3 [Concomitant]
     Active Substance: CHOLECALCIFEROL
  7. DIROXIN [Concomitant]
  8. JANUVIA BYSTOLIC [Concomitant]
  9. WARFARIN [Concomitant]
     Active Substance: WARFARIN
  10. HCT [Concomitant]
     Active Substance: HYDROCHLOROTHIAZIDE
  11. FISH OIL [Concomitant]
     Active Substance: FISH OIL
  12. MULTI VITAMIN [Concomitant]
     Active Substance: VITAMINS

REACTIONS (5)
  - Fall [None]
  - Hallucination, visual [None]
  - Confusional state [None]
  - Somnolence [None]
  - Balance disorder [None]

NARRATIVE: CASE EVENT DATE: 20170807
